FAERS Safety Report 14444827 (Version 1)
Quarter: 2018Q1

REPORT INFORMATION
  Report Type: Spontaneous
  Country: TR (occurrence: TR)
  Receive Date: 20180126
  Receipt Date: 20180126
  Transmission Date: 20180509
  Serious: Yes (Hospitalization, Other)
  Sender: FDA-Public Use
  Company Number: PHHY2018TR008876

PATIENT
  Age: 5 Month
  Sex: Female
  Weight: 6.9 kg

DRUGS (1)
  1. CLOBETASOL PROPIONATE. [Suspect]
     Active Substance: CLOBETASOL PROPIONATE
     Indication: DERMATITIS DIAPER
     Route: 061

REACTIONS (20)
  - Intentional product misuse [Unknown]
  - Cushing^s syndrome [Unknown]
  - Cushingoid [Recovered/Resolved]
  - Central obesity [Unknown]
  - Skin atrophy [Unknown]
  - Telangiectasia [Unknown]
  - Cortisol decreased [Unknown]
  - Fontanelle bulging [Unknown]
  - Vomiting [Unknown]
  - Pyrexia [Unknown]
  - Delayed myelination [Unknown]
  - Product use in unapproved indication [Unknown]
  - Lipohypertrophy [Unknown]
  - Thrombocytosis [Unknown]
  - Cerebral atrophy [Unknown]
  - Lethargy [Unknown]
  - Poor feeding infant [Unknown]
  - Abnormal weight gain [Unknown]
  - Aspartate aminotransferase increased [Unknown]
  - Blood corticotrophin decreased [Unknown]
